FAERS Safety Report 7722448-X (Version None)
Quarter: 2011Q3

REPORT INFORMATION
  Report Type: 
  Country: None (occurrence: None)
  Receive Date: 20110831
  Receipt Date: 20110822
  Transmission Date: 20111222
  Serious: Yes (Other)
  Sender: FDA-Public Use
  Company Number: US-ASTRAZENECA-2011SE50523

PATIENT
  Age: 60 Year
  Sex: Female

DRUGS (2)
  1. SEROQUEL [Suspect]
     Route: 048
  2. SEROQUEL [Suspect]
     Route: 048

REACTIONS (11)
  - DRUG DOSE OMISSION [None]
  - MIGRAINE [None]
  - HEADACHE [None]
  - IRRITABILITY [None]
  - BRAIN NEOPLASM [None]
  - APHAGIA [None]
  - SWEAT GLAND DISORDER [None]
  - MUSCLE SPASMS [None]
  - INSOMNIA [None]
  - CONVULSION [None]
  - OFF LABEL USE [None]
